FAERS Safety Report 23034836 (Version 2)
Quarter: 2023Q4

REPORT INFORMATION
  Report Type: Spontaneous
  Country: US (occurrence: US)
  Receive Date: 20231005
  Receipt Date: 20231120
  Transmission Date: 20240110
  Serious: Yes (Hospitalization)
  Sender: FDA-Public Use
  Company Number: US-PFIZER INC-202300314655

PATIENT
  Age: 71 Year
  Sex: Female
  Weight: 81.65 kg

DRUGS (5)
  1. PAXLOVID [Suspect]
     Active Substance: NIRMATRELVIR\RITONAVIR
     Indication: COVID-19 treatment
     Dosage: UNK
     Dates: start: 20230925, end: 20230930
  2. PREDNISOLONE ACETATE [Concomitant]
     Active Substance: PREDNISOLONE ACETATE
     Dosage: 1 DF (BOTH EYES)
     Dates: start: 20230920, end: 20230930
  3. GLUCOSAMINE SULFATE + CHONDROITIN [Concomitant]
     Dosage: 1 DF, 1X/DAY
  4. CALCIUM + MAGNESIUM + ZINK [Concomitant]
     Dosage: 1 DF, DAILY
  5. VALACYCLOVIR [Concomitant]
     Active Substance: VALACYCLOVIR HYDROCHLORIDE
     Dosage: 500 MG, 1X/DAY

REACTIONS (6)
  - Diarrhoea [Recovered/Resolved]
  - Throat tightness [Recovered/Resolved]
  - Dysgeusia [Recovered/Resolved]
  - Dysphagia [Unknown]
  - Oropharyngeal pain [Recovered/Resolved]
  - Ear pain [Unknown]
